FAERS Safety Report 26108314 (Version 1)
Quarter: 2025Q4

REPORT INFORMATION
  Report Type: Spontaneous
  Country: GB (occurrence: GB)
  Receive Date: 20251201
  Receipt Date: 20251201
  Transmission Date: 20260118
  Serious: Yes (Other)
  Sender: MYLAN
  Company Number: GB-MYLANLABS-2025M1100435

PATIENT
  Age: 32 Year
  Sex: Female

DRUGS (6)
  1. FENTANYL [Suspect]
     Active Substance: FENTANYL
     Indication: Epidural analgesia
     Dosage: UNK, 2?MCG/ML; INFUSION AT THE L3-L4 INTERSPACE, FROM A PROGRAMMED PATIENT-CONTROLLED EPIDURAL ANALGESIA PUMP (8 ML BOLUS WITH 15?MINUTES LOCK-OUT TIME)
  2. FENTANYL [Suspect]
     Active Substance: FENTANYL
     Indication: Labour pain
  3. REMIFENTANIL [Suspect]
     Active Substance: REMIFENTANIL
     Indication: Analgesic therapy
     Dosage: UNK
  4. REMIFENTANIL [Suspect]
     Active Substance: REMIFENTANIL
     Indication: Labour pain
  5. LEVOBUPIVACAINE [Suspect]
     Active Substance: LEVOBUPIVACAINE
     Indication: Epidural analgesia
     Dosage: UNK, INFUSION AT THE L3-L4 INTERSPACE, FROM A PROGRAMMED PATIENT-CONTROLLED EPIDURAL ANALGESIA PUMP (8 ML BOLUS WITH 15?MINUTES LOCK-OUT TIME)
  6. LEVOBUPIVACAINE [Suspect]
     Active Substance: LEVOBUPIVACAINE
     Indication: Labour pain

REACTIONS (3)
  - Maternal exposure during delivery [Recovered/Resolved]
  - Horner^s syndrome [Recovered/Resolved]
  - Normal newborn [Recovered/Resolved]
